FAERS Safety Report 16463200 (Version 3)
Quarter: 2019Q3

REPORT INFORMATION
  Report Type: Spontaneous
  Country: US (occurrence: US)
  Receive Date: 20190621
  Receipt Date: 20190904
  Transmission Date: 20191004
  Serious: Yes (Other)
  Sender: FDA-Public Use
  Company Number: US-PFIZER INC-2019260722

PATIENT
  Age: 72 Year
  Sex: Female
  Weight: 67 kg

DRUGS (10)
  1. IBRANCE [Suspect]
     Active Substance: PALBOCICLIB
     Dosage: UNK
     Dates: start: 201905
  2. GABAPENTIN. [Concomitant]
     Active Substance: GABAPENTIN
     Dosage: UNK
     Dates: start: 201905
  3. IBRANCE [Suspect]
     Active Substance: PALBOCICLIB
     Dosage: 125 MG, 1X/DAY
     Route: 048
     Dates: start: 20190430, end: 20190611
  4. LEVOTHYROXINE. [Concomitant]
     Active Substance: LEVOTHYROXINE
     Dosage: 0.1 MG, 1X/DAY
  5. IBRANCE [Suspect]
     Active Substance: PALBOCICLIB
     Indication: BREAST CANCER METASTATIC
     Dosage: 275 MG, 1X/DAY
  6. OMEPRAZOLE. [Concomitant]
     Active Substance: OMEPRAZOLE
     Dosage: 40 MG, 1X/DAY
  7. ANASTROZOLE. [Concomitant]
     Active Substance: ANASTROZOLE
     Dosage: 1 MG, UNK
     Dates: start: 20190430
  8. GABAPENTIN. [Concomitant]
     Active Substance: GABAPENTIN
     Dosage: 300 MG, 2X/DAY
  9. IBRANCE [Suspect]
     Active Substance: PALBOCICLIB
     Dosage: 275 MG, ALTERNATE DAY (EVERY OTHER DAY)
  10. ANASTROZOLE. [Concomitant]
     Active Substance: ANASTROZOLE
     Dosage: UNK
     Dates: start: 201905

REACTIONS (13)
  - Intentional product use issue [Unknown]
  - Dysstasia [Unknown]
  - Movement disorder [Unknown]
  - Sinusitis [Unknown]
  - Muscle tightness [Unknown]
  - Arthropathy [Unknown]
  - Muscle disorder [Unknown]
  - Asthenia [Unknown]
  - Fatigue [Unknown]
  - Muscular weakness [Unknown]
  - Loss of personal independence in daily activities [Unknown]
  - Stomatitis [Unknown]
  - Neutropenia [Recovered/Resolved]

NARRATIVE: CASE EVENT DATE: 20190521
